FAERS Safety Report 6608525-5 (Version None)
Quarter: 2010Q1

REPORT INFORMATION
  Report Type: 
  Country: None (occurrence: None)
  Receive Date: 20100212
  Receipt Date: 20091222
  Transmission Date: 20100710
  Serious: No
  Sender: FDA-Public Use
  Company Number: 1000010929

PATIENT
  Age: 35 Year
  Sex: Male

DRUGS (1)
  1. SAVELLA [Suspect]

REACTIONS (1)
  - RASH [None]
